FAERS Safety Report 9803508 (Version 1)
Quarter: 2014Q1

REPORT INFORMATION
  Report Type: Spontaneous
  Country: US (occurrence: US)
  Receive Date: 20140108
  Receipt Date: 20140108
  Transmission Date: 20141002
  Serious: No
  Sender: FDA-Public Use
  Company Number: US-GLAXOSMITHKLINE-A1000755A

PATIENT
  Sex: Male

DRUGS (3)
  1. LOVAZA [Suspect]
     Indication: BLOOD TRIGLYCERIDES INCREASED
     Dosage: 2CAP TWICE PER DAY
     Route: 048
  2. SIMVASTATIN [Concomitant]
  3. LISINOPRIL [Concomitant]

REACTIONS (5)
  - Pruritus [Recovered/Resolved]
  - Burning sensation [Unknown]
  - Dysgeusia [Unknown]
  - Dyspepsia [Unknown]
  - Eructation [Unknown]
